FAERS Safety Report 8216933-4 (Version None)
Quarter: 2012Q1

REPORT INFORMATION
  Report Type: 
  Country: None (occurrence: None)
  Receive Date: 20120319
  Receipt Date: 20120305
  Transmission Date: 20120608
  Serious: Yes (Hospitalization)
  Sender: FDA-Public Use
  Company Number: CH-BRISTOL-MYERS SQUIBB COMPANY-16432023

PATIENT
  Age: 47 Year
  Sex: Male

DRUGS (3)
  1. CISPLATIN [Suspect]
     Indication: GERM CELL CANCER
  2. BLEOMYCIN SULFATE [Suspect]
     Indication: GERM CELL CANCER
  3. ETOPOSIDE [Suspect]
     Indication: GERM CELL CANCER

REACTIONS (1)
  - INTRACRANIAL VENOUS SINUS THROMBOSIS [None]
